FAERS Safety Report 16983228 (Version 1)
Quarter: 2019Q4

REPORT INFORMATION
  Report Type: Spontaneous
  Country: US (occurrence: US)
  Receive Date: 20191101
  Receipt Date: 20191101
  Transmission Date: 20200122
  Serious: Yes (Other)
  Sender: FDA-Public Use
  Company Number: NVSC2019US021486

PATIENT
  Age: 15 Year
  Sex: Male

DRUGS (1)
  1. DILTIAZEM. [Suspect]
     Active Substance: DILTIAZEM
     Indication: PRODUCT USED FOR UNKNOWN INDICATION
     Dosage: 2500 MG
     Route: 065

REACTIONS (13)
  - Hyperkalaemia [Unknown]
  - Acute kidney injury [Unknown]
  - Respiratory failure [Unknown]
  - Sinus tachycardia [Unknown]
  - Intentional overdose [Unknown]
  - Arrhythmia [Unknown]
  - Cardiac arrest [Unknown]
  - Hypotension [Unknown]
  - Cardioplegia [Unknown]
  - Rhabdomyolysis [Unknown]
  - Lactic acidosis [Unknown]
  - Seizure [Unknown]
  - Peripheral ischaemia [Unknown]
